FAERS Safety Report 8248569-3 (Version None)
Quarter: 2012Q1

REPORT INFORMATION
  Report Type: 
  Country: None (occurrence: None)
  Receive Date: 20120330
  Receipt Date: 20120326
  Transmission Date: 20120608
  Serious: Yes (Life-Threatening, Hospitalization)
  Sender: FDA-Public Use
  Company Number: FR-ASTRAZENECA-2012SE20573

PATIENT
  Age: 46 Year
  Sex: Female

DRUGS (5)
  1. ULTIVA [Suspect]
     Indication: ANAESTHESIA
     Route: 042
     Dates: start: 20120314, end: 20120314
  2. TENORMIN [Concomitant]
  3. MIDAZOLAM HCL [Suspect]
     Indication: ANAESTHESIA
     Route: 042
     Dates: start: 20120314, end: 20120314
  4. DIPRIVAN [Suspect]
     Indication: ANAESTHESIA
     Route: 042
     Dates: start: 20120314, end: 20120314
  5. ROCURONIUM BROMIDE [Suspect]
     Indication: ANAESTHESIA
     Route: 042
     Dates: start: 20120314, end: 20120314

REACTIONS (1)
  - SHOCK [None]
